FAERS Safety Report 18500445 (Version 3)
Quarter: 2021Q2

REPORT INFORMATION
  Report Type: Spontaneous
  Country: US (occurrence: US)
  Receive Date: 20201113
  Receipt Date: 20210428
  Transmission Date: 20210717
  Serious: No
  Sender: FDA-Public Use
  Company Number: US-ALVOGEN-2020-ALVOGEN-115177

PATIENT
  Age: 77 Year
  Sex: Male
  Weight: 68.18 kg

DRUGS (8)
  1. GOCOVRI [Suspect]
     Active Substance: AMANTADINE
     Indication: DYSKINESIA
     Dosage: EXTENDED?RELEASE CAPSULE
     Route: 048
     Dates: start: 20200307, end: 202003
  2. TENORMIN [Suspect]
     Active Substance: ATENOLOL
     Indication: SUPRAVENTRICULAR EXTRASYSTOLES
     Dosage: 25 MG, 1X/DAY
     Route: 048
  3. ARICEPT [Suspect]
     Active Substance: DONEPEZIL HYDROCHLORIDE
     Indication: MEMORY IMPAIRMENT
     Route: 048
     Dates: start: 202005
  4. CARBIDOPA/LEVODOPA [Suspect]
     Active Substance: CARBIDOPA\LEVODOPA
     Indication: PARKINSON^S DISEASE
     Dates: start: 2017, end: 202010
  5. LEVODOPA [Concomitant]
     Active Substance: LEVODOPA
     Indication: PRODUCT USED FOR UNKNOWN INDICATION
  6. BABY ASPIRIN [Concomitant]
     Active Substance: ASPIRIN
     Indication: PRODUCT USED FOR UNKNOWN INDICATION
  7. MIRAPEX ER [Suspect]
     Active Substance: PRAMIPEXOLE DIHYDROCHLORIDE
     Indication: PARKINSON^S DISEASE
     Dosage: 0.375 MG, 1X/DAY
     Route: 048
  8. LEXAPRO [Suspect]
     Active Substance: ESCITALOPRAM OXALATE
     Indication: DEPRESSION
     Route: 048

REACTIONS (5)
  - Polyuria [Not Recovered/Not Resolved]
  - Bladder spasm [Recovered/Resolved]
  - Nasal congestion [Unknown]
  - Pollakiuria [Not Recovered/Not Resolved]
  - Benign prostatic hyperplasia [Unknown]
